FAERS Safety Report 6500484-9 (Version None)
Quarter: 2009Q4

REPORT INFORMATION
  Report Type: 
  Country: None (occurrence: None)
  Receive Date: 20091216
  Receipt Date: 20091208
  Transmission Date: 20100525
  Serious: Yes (Hospitalization)
  Sender: FDA-Public Use
  Company Number: US-SANOFI-AVENTIS-2009SA008411

PATIENT
  Age: 60 Year
  Sex: Female

DRUGS (6)
  1. MULTAQ [Suspect]
     Route: 048
     Dates: start: 20091101
  2. DIGOXIN [Concomitant]
  3. ASPIRIN [Concomitant]
  4. NYSTATIN [Concomitant]
  5. EFFEXOR [Concomitant]
  6. LOVASTATIN [Concomitant]

REACTIONS (2)
  - CARDIAC FAILURE CONGESTIVE [None]
  - OFF LABEL USE [None]
